FAERS Safety Report 8488093-6 (Version None)
Quarter: 2012Q3

REPORT INFORMATION
  Report Type: 
  Country: None (occurrence: None)
  Receive Date: 20120705
  Receipt Date: 20120703
  Transmission Date: 20120928
  Serious: Yes (Other)
  Sender: FDA-Public Use
  Company Number: JP-PFIZER INC-2012145802

PATIENT
  Age: 59 Year
  Sex: Female

DRUGS (5)
  1. URSO 250 [Concomitant]
     Dosage: UNK
  2. NORVASC [Suspect]
     Dosage: 5 MG, 1X/DAY
     Route: 048
     Dates: start: 20120605
  3. AMLODIPINE [Concomitant]
     Dosage: UNK
     Dates: end: 20120501
  4. NEO-MINOPHAGEN C [Concomitant]
     Dosage: UNK
  5. INDERAL [Concomitant]
     Dosage: UNK

REACTIONS (2)
  - BLOOD UREA INCREASED [None]
  - BLOOD CREATININE INCREASED [None]
